FAERS Safety Report 8518021-6 (Version None)
Quarter: 2012Q3

REPORT INFORMATION
  Report Type: 
  Country: None (occurrence: None)
  Receive Date: 20120718
  Receipt Date: 20110805
  Transmission Date: 20120928
  Serious: No
  Sender: FDA-Public Use
  Company Number: US-BRISTOL-MYERS SQUIBB COMPANY-15950819

PATIENT
  Age: 71 Year
  Sex: Female
  Weight: 84 kg

DRUGS (12)
  1. METOPROLOL SUCCINATE [Concomitant]
  2. NIASPAN [Concomitant]
  3. TYLENOL [Concomitant]
     Indication: ARTHRITIS
  4. CRESTOR [Concomitant]
  5. DIOVAN [Concomitant]
  6. FISH OIL [Concomitant]
  7. CITALOPRAM HYDROBROMIDE [Concomitant]
  8. LEVOTHYROXINE SODIUM [Concomitant]
  9. COUMADIN [Suspect]
     Indication: ATRIAL FIBRILLATION
     Dosage: 1DF=.5 MG ONCE DAILY FOR 6 DAYS OF THE WEEK AND 1.25 MG FOR ONE DAY OF THE WEEK.
     Dates: start: 20050101
  10. DILTIAZEM HCL [Concomitant]
  11. LORATADINE [Concomitant]
  12. VITAMIN D [Concomitant]

REACTIONS (1)
  - PROTHROMBIN TIME PROLONGED [None]
